FAERS Safety Report 12598202 (Version 4)
Quarter: 2016Q3

REPORT INFORMATION
  Report Type: Spontaneous
  Country: US (occurrence: US)
  Receive Date: 20160726
  Receipt Date: 20160916
  Transmission Date: 20161109
  Serious: Yes (Hospitalization)
  Sender: FDA-Public Use
  Company Number: US-JNJFOC-20160611001

PATIENT
  Sex: Male

DRUGS (3)
  1. RISPERDAL [Suspect]
     Active Substance: RISPERIDONE
     Indication: BIPOLAR DISORDER
     Route: 048
     Dates: start: 201405, end: 2014
  2. RISPERDAL CONSTA [Suspect]
     Active Substance: RISPERIDONE
     Indication: BIPOLAR DISORDER
     Route: 042
     Dates: start: 201405, end: 2014
  3. RISPERDAL [Suspect]
     Active Substance: RISPERIDONE
     Indication: BIPOLAR DISORDER
     Dosage: STARTED ON AN UNSPECIFIED DATE IN 2006 OR 2007
     Route: 048

REACTIONS (11)
  - Type 2 diabetes mellitus [Not Recovered/Not Resolved]
  - Confusional state [Unknown]
  - Hospitalisation [Unknown]
  - Therapeutic response unexpected [Unknown]
  - Incorrect route of drug administration [Unknown]
  - Device leakage [Unknown]
  - Malaise [Unknown]
  - Weight increased [Recovering/Resolving]
  - Aggression [Unknown]
  - Underdose [Unknown]
  - Anxiety [Unknown]

NARRATIVE: CASE EVENT DATE: 2014
